FAERS Safety Report 14768082 (Version 3)
Quarter: 2018Q3

REPORT INFORMATION
  Report Type: Report from Study
  Country: JP (occurrence: JP)
  Receive Date: 20180417
  Receipt Date: 20180829
  Transmission Date: 20181010
  Serious: Yes (Death, Other)
  Sender: FDA-Public Use
  Company Number: JP-009507513-1804JPN001279J

PATIENT
  Age: 80 Year
  Sex: Male
  Weight: 51 kg

DRUGS (5)
  1. PEMBROLIZUMAB. [Suspect]
     Active Substance: PEMBROLIZUMAB
     Indication: TRANSITIONAL CELL CARCINOMA
     Dosage: 200 MG, UNK
     Route: 041
     Dates: start: 20180117, end: 20180320
  2. CEROCRAL [Concomitant]
     Active Substance: IFENPRODIL
     Dosage: 20 MG, BID
     Route: 048
  3. LYRICA [Concomitant]
     Active Substance: PREGABALIN
     Dosage: 50 MG, BID
     Dates: start: 20180124
  4. OXYCODONE HYDROCHLORIDE LANNACHER [Concomitant]
     Dosage: 20 MG, BID
     Route: 048
     Dates: start: 20180326
  5. AMLODIPINE [Concomitant]
     Active Substance: AMLODIPINE BESYLATE
     Dosage: 5 MG, QD
     Route: 048

REACTIONS (1)
  - Malignant neoplasm progression [Fatal]

NARRATIVE: CASE EVENT DATE: 2018
